FAERS Safety Report 17347336 (Version 1)
Quarter: 2020Q1

REPORT INFORMATION
  Report Type: Spontaneous
  Country: US (occurrence: US)
  Receive Date: 20200114
  Receipt Date: 20200114
  Transmission Date: 20200409
  Serious: Yes (Other)
  Sender: FDA-Public Use
  Company Number: None

PATIENT
  Age: 65 Year
  Sex: Female

DRUGS (7)
  1. VENTOLIN [Concomitant]
     Active Substance: ALBUTEROL SULFATE
  2. DULOXETINE. [Suspect]
     Active Substance: DULOXETINE
     Indication: CORONARY ARTERIAL STENT INSERTION
     Dosage: ?          QUANTITY:1 PILL;?
     Route: 048
     Dates: start: 20190124
  3. VITAMIN B12 [Concomitant]
     Active Substance: CYANOCOBALAMIN
  4. TRILUCITY [Concomitant]
  5. HUMMULIN [Concomitant]
  6. DUO-NEB [Concomitant]
  7. SYMBICORT [Concomitant]
     Active Substance: BUDESONIDE\FORMOTEROL FUMARATE DIHYDRATE

REACTIONS (4)
  - Blood pressure increased [None]
  - Muscle spasms [None]
  - Nightmare [None]
  - Hyperhidrosis [None]

NARRATIVE: CASE EVENT DATE: 20190123
